FAERS Safety Report 11256140 (Version 1)
Quarter: 2015Q3

REPORT INFORMATION
  Report Type: Spontaneous
  Country: US (occurrence: US)
  Receive Date: 20150709
  Receipt Date: 20150709
  Transmission Date: 20151125
  Serious: No
  Sender: FDA-Public Use
  Company Number: US-VIIV HEALTHCARE LIMITED-US2015044315

PATIENT
  Sex: Female

DRUGS (2)
  1. VIRAMUNE [Concomitant]
     Active Substance: NEVIRAPINE
  2. COMBIVIR [Suspect]
     Active Substance: LAMIVUDINE\ZIDOVUDINE
     Indication: HIV INFECTION
     Dosage: 150 MG, BID
     Route: 048
     Dates: start: 2005

REACTIONS (1)
  - Fat redistribution [Not Recovered/Not Resolved]

NARRATIVE: CASE EVENT DATE: 2006
